FAERS Safety Report 4385360-2 (Version None)
Quarter: 2004Q2

REPORT INFORMATION
  Report Type: 
  Country: None (occurrence: None)
  Receive Date: 20040621
  Receipt Date: 20040610
  Transmission Date: 20050107
  Serious: Yes (Death)
  Sender: FDA-Public Use
  Company Number: US-JNJFOC-20040602881

PATIENT

DRUGS (1)
  1. ABCIXIMAB (ABCIXIMAB) INJECTION [Suspect]
     Indication: PHLEBOTHROMBOSIS
     Dosage: INTRAVENOUS
     Route: 042

REACTIONS (1)
  - INFECTION [None]
